FAERS Safety Report 21782941 (Version 3)
Quarter: 2025Q1

REPORT INFORMATION
  Report Type: Spontaneous
  Country: CA (occurrence: CA)
  Receive Date: 20221227
  Receipt Date: 20250319
  Transmission Date: 20250409
  Serious: Yes (Hospitalization, Other)
  Sender: NOVO NORDISK
  Company Number: None

PATIENT
  Age: 53 Year
  Sex: Female

DRUGS (52)
  1. NORDITROPIN [Interacting]
     Active Substance: SOMATROPIN
     Indication: Product used for unknown indication
  2. BUDESONIDE\FORMOTEROL FUMARATE DIHYDRATE [Interacting]
     Active Substance: BUDESONIDE\FORMOTEROL FUMARATE DIHYDRATE
     Indication: Product used for unknown indication
  3. BUDESONIDE\FORMOTEROL FUMARATE DIHYDRATE [Interacting]
     Active Substance: BUDESONIDE\FORMOTEROL FUMARATE DIHYDRATE
  4. LINOLEIC ACID, CONJUGATED [Suspect]
     Active Substance: LINOLEIC ACID, CONJUGATED
     Indication: Product used for unknown indication
     Route: 048
  5. ALCOHOL [Suspect]
     Active Substance: ALCOHOL
     Indication: Product used for unknown indication
  6. FISH OIL [Interacting]
     Active Substance: FISH OIL
     Indication: Product used for unknown indication
     Route: 048
  7. FISH OIL [Interacting]
     Active Substance: FISH OIL
     Route: 048
  8. LORAZEPAM [Interacting]
     Active Substance: LORAZEPAM
     Indication: Product used for unknown indication
     Dosage: 1 MG, QD
  9. MSM [Interacting]
     Active Substance: DIMETHYL SULFONE
     Indication: Product used for unknown indication
  10. PROGESTERONE [Interacting]
     Active Substance: PROGESTERONE
     Indication: Product used for unknown indication
     Dosage: 100 MG, QD
     Route: 030
  11. VARENICLINE [Suspect]
     Active Substance: VARENICLINE
     Indication: Product used for unknown indication
     Dosage: 0.5 MG, QD
  12. VENLAFAXINE [Interacting]
     Active Substance: VENLAFAXINE HYDROCHLORIDE
     Indication: Product used for unknown indication
  13. CHOLECALCIFEROL [Interacting]
     Active Substance: CHOLECALCIFEROL
     Indication: Product used for unknown indication
     Dosage: 1000 IU, QD
  14. DOCONEXENT [Suspect]
     Active Substance: DOCONEXENT
     Indication: Product used for unknown indication
  15. ICOSAPENT [Suspect]
     Active Substance: ICOSAPENT
     Indication: Product used for unknown indication
  16. LACTOBACILLUS ACIDOPHILUS [Interacting]
     Active Substance: LACTOBACILLUS ACIDOPHILUS
     Indication: Product used for unknown indication
     Route: 048
  17. LACTOBACILLUS CASEI [Suspect]
     Active Substance: LACTOBACILLUS CASEI
     Indication: Product used for unknown indication
  18. LACTOBACILLUS RHAMNOSUS [Suspect]
     Active Substance: LACTOBACILLUS RHAMNOSUS
     Indication: Product used for unknown indication
  19. THIOCTIC ACID [Suspect]
     Active Substance: THIOCTIC ACID
     Indication: Product used for unknown indication
  20. UBIDECARENONE [Suspect]
     Active Substance: UBIDECARENONE
     Indication: Product used for unknown indication
  21. RETINOL [Suspect]
     Active Substance: RETINOL
     Indication: Product used for unknown indication
  22. VITAMIN C [Suspect]
     Active Substance: ASCORBIC ACID
     Indication: Product used for unknown indication
  23. VITAMIN C [Suspect]
     Active Substance: ASCORBIC ACID
  24. .ALPHA.-TOCOPHEROL, D- [Suspect]
     Active Substance: .ALPHA.-TOCOPHEROL, D-
     Indication: Product used for unknown indication
  25. LINOLEIC ACID [Interacting]
     Active Substance: LINOLEIC ACID
     Indication: Product used for unknown indication
     Route: 048
  26. ERGOCALCIFEROL [Interacting]
     Active Substance: ERGOCALCIFEROL
     Indication: Product used for unknown indication
     Dosage: 1000 IU, QD
     Route: 048
  27. ESTRADIOL [Suspect]
     Active Substance: ESTRADIOL
     Dosage: 50 ?G, QD
     Route: 062
  28. ESTRADIOL [Suspect]
     Active Substance: ESTRADIOL
     Route: 062
  29. ESTRADIOL [Suspect]
     Active Substance: ESTRADIOL
     Indication: Product used for unknown indication
     Route: 062
  30. VARENICLINE TARTRATE [Suspect]
     Active Substance: VARENICLINE TARTRATE
     Indication: Product used for unknown indication
  31. VENLAFAXINE HYDROCHLORIDE [Suspect]
     Active Substance: VENLAFAXINE HYDROCHLORIDE
     Indication: Product used for unknown indication
  32. ALANINE [Suspect]
     Active Substance: ALANINE
     Indication: Product used for unknown indication
     Route: 048
  33. ARGININE [Suspect]
     Active Substance: ARGININE
     Indication: Product used for unknown indication
     Route: 048
  34. GLUTAMIC ACID [Suspect]
     Active Substance: GLUTAMIC ACID
     Indication: Product used for unknown indication
  35. GLYCINE [Suspect]
     Active Substance: GLYCINE
     Indication: Product used for unknown indication
  36. HISTIDINE [Suspect]
     Active Substance: HISTIDINE
     Indication: Product used for unknown indication
  37. ASPARTIC ACID [Suspect]
     Active Substance: ASPARTIC ACID
     Indication: Product used for unknown indication
  38. CYSTEINE [Suspect]
     Active Substance: CYSTEINE
     Indication: Product used for unknown indication
  39. METHIONINE [Suspect]
     Active Substance: METHIONINE
     Indication: Product used for unknown indication
  40. LEUCINE [Suspect]
     Active Substance: LEUCINE
     Indication: Product used for unknown indication
  41. LYSINE [Suspect]
     Active Substance: LYSINE
     Indication: Product used for unknown indication
  42. PHENYLALANINE [Suspect]
     Active Substance: PHENYLALANINE
     Indication: Product used for unknown indication
  43. PROLINE [Suspect]
     Active Substance: PROLINE
     Indication: Product used for unknown indication
  44. SERINE [Suspect]
     Active Substance: SERINE
     Indication: Product used for unknown indication
  45. SORBITOL [Suspect]
     Active Substance: SORBITOL
     Indication: Product used for unknown indication
  46. THREONINE [Suspect]
     Active Substance: THREONINE
     Indication: Product used for unknown indication
  47. TRYPTOPHAN [Suspect]
     Active Substance: TRYPTOPHAN
     Indication: Product used for unknown indication
  48. TYROSINE [Suspect]
     Active Substance: TYROSINE
     Indication: Product used for unknown indication
  49. VALINE [Suspect]
     Active Substance: VALINE
     Indication: Product used for unknown indication
  50. VENLAFAXINE HYDROCHLORIDE [Suspect]
     Active Substance: VENLAFAXINE HYDROCHLORIDE
     Indication: Product used for unknown indication
  51. DIMETHYL SULFONE [Suspect]
     Active Substance: DIMETHYL SULFONE
     Indication: Product used for unknown indication
  52. DOCONEXENT\ICOSAPENT [Suspect]
     Active Substance: DOCONEXENT\ICOSAPENT
     Indication: Product used for unknown indication
     Route: 048

REACTIONS (6)
  - Hepatotoxicity [Recovered/Resolved]
  - Hepatic cirrhosis [Recovered/Resolved]
  - Drug-induced liver injury [Recovered/Resolved]
  - Drug interaction [Recovered/Resolved]
  - Hepatic encephalopathy [Recovered/Resolved]
  - Hepatic necrosis [Recovered/Resolved]
